FAERS Safety Report 23299492 (Version 1)
Quarter: 2023Q4

REPORT INFORMATION
  Report Type: Spontaneous
  Country: US (occurrence: US)
  Receive Date: 20231215
  Receipt Date: 20231215
  Transmission Date: 20240110
  Serious: No
  Sender: FDA-Public Use
  Company Number: US-CELLTRION INC.-2023US021132

PATIENT

DRUGS (2)
  1. TRUXIMA [Suspect]
     Active Substance: RITUXIMAB-ABBS
     Indication: Antiphospholipid syndrome
     Dosage: 1000 MG EVERY 2 WEEKS, TIMES 2 DOSES EVERY 6 MONTHS
     Dates: start: 20231016
  2. TRUXIMA [Suspect]
     Active Substance: RITUXIMAB-ABBS
     Indication: Hypercoagulation
     Dosage: 1000 MG EVERY 2 WEEKS TIMES 2 DOSES EVERY 6 MONTHS
     Dates: start: 20231030

REACTIONS (1)
  - Off label use [Unknown]
